FAERS Safety Report 12678972 (Version 4)
Quarter: 2016Q3

REPORT INFORMATION
  Report Type: Report from Study
  Country: CA (occurrence: CA)
  Receive Date: 20160824
  Receipt Date: 20160928
  Transmission Date: 20161109
  Serious: Yes (Other)
  Sender: FDA-Public Use
  Company Number: CA-AMGEN-CANSL2016109556

PATIENT
  Age: 73 Year
  Sex: Female
  Weight: 56 kg

DRUGS (5)
  1. FOLIC ACID. [Concomitant]
     Active Substance: FOLIC ACID
     Dosage: 5 MG, WEEKLY
  2. ENBREL [Suspect]
     Active Substance: ETANERCEPT
     Indication: RHEUMATOID ARTHRITIS
     Dosage: 50 MG, QWK
     Route: 058
     Dates: start: 20090210
  3. METHOTREXATE. [Concomitant]
     Active Substance: METHOTREXATE
     Indication: ARTHRITIS
     Dosage: 6 DF (TABLET), UNK
  4. PROLIA [Concomitant]
     Active Substance: DENOSUMAB
     Dosage: UNK
  5. LEFLUNOMIDE. [Concomitant]
     Active Substance: LEFLUNOMIDE

REACTIONS (8)
  - Pulse abnormal [Unknown]
  - Blood pressure abnormal [Unknown]
  - Pain [Unknown]
  - Joint swelling [Unknown]
  - Metastases to bone [Unknown]
  - Malaise [Unknown]
  - Breast cancer recurrent [Unknown]
  - Arthralgia [Unknown]
